FAERS Safety Report 6642386-3 (Version None)
Quarter: 2010Q1

REPORT INFORMATION
  Report Type: 
  Country: None (occurrence: None)
  Receive Date: 20100316
  Receipt Date: 20100302
  Transmission Date: 20100710
  Serious: Yes (Other)
  Sender: FDA-Public Use
  Company Number: WAES 1003USA00780

PATIENT
  Age: 65 Year
  Sex: Female
  Weight: 65.7716 kg

DRUGS (11)
  1. VYTORIN [Suspect]
     Indication: ACUTE CORONARY SYNDROME
     Dosage: 10-40 MG/DAILY/PO
     Route: 048
     Dates: start: 20090701
  2. PLACEBO (UNSPECIFIED) UNK [Suspect]
     Indication: ACUTE CORONARY SYNDROME
     Dosage: /PO
     Route: 048
     Dates: start: 20090701
  3. TAB PLACEBO (UNSPECIFIED) UNK [Suspect]
     Indication: ACUTE CORONARY SYNDROME
     Dosage: /PO
     Route: 048
     Dates: start: 20090701
  4. ASPIRIN [Concomitant]
  5. BISOPROLOL [Concomitant]
  6. HYDROXYUREA [Concomitant]
  7. ISOSORBIDE MONONITRATE [Concomitant]
  8. LANSOPRAZOLE [Concomitant]
  9. QUININE SULFATE [Concomitant]
  10. RAMIPRIL [Concomitant]
  11. WARFARIN SODIUM [Concomitant]

REACTIONS (1)
  - MALIGNANT TUMOUR EXCISION [None]
